FAERS Safety Report 8549652-5 (Version None)
Quarter: 2012Q3

REPORT INFORMATION
  Report Type: 
  Country: None (occurrence: None)
  Receive Date: 20120730
  Receipt Date: 20120726
  Transmission Date: 20120928
  Serious: Yes (Hospitalization)
  Sender: FDA-Public Use
  Company Number: US-FRI-1000028731

PATIENT
  Sex: Female
  Weight: 65 kg

DRUGS (3)
  1. LEXAPRO [Suspect]
     Dosage: 10 MG
     Route: 048
     Dates: start: 20120203, end: 20120214
  2. LEXAPRO [Suspect]
     Indication: GENERALISED ANXIETY DISORDER
     Dosage: 5 MG
     Route: 048
     Dates: start: 20110707, end: 20120202
  3. LEXAPRO [Suspect]
     Dosage: 5 MG
     Dates: start: 20120215

REACTIONS (6)
  - SUICIDE ATTEMPT [None]
  - SUICIDAL IDEATION [None]
  - INTENTIONAL SELF-INJURY [None]
  - DEPRESSION [None]
  - OFF LABEL USE [None]
  - FATIGUE [None]
